FAERS Safety Report 5328553-X (Version None)
Quarter: 2007Q2

REPORT INFORMATION
  Report Type: 
  Country: None (occurrence: None)
  Receive Date: 20070518
  Receipt Date: 20070508
  Transmission Date: 20071010
  Serious: Yes (Life-Threatening, Hospitalization)
  Sender: FDA-Public Use
  Company Number: US-JNJFOC-20070502727

PATIENT

DRUGS (1)
  1. IBUPROFEN [Suspect]
     Indication: CYSTIC FIBROSIS

REACTIONS (1)
  - RENAL FAILURE ACUTE [None]
